FAERS Safety Report 18175959 (Version 1)
Quarter: 2020Q3

REPORT INFORMATION
  Report Type: Spontaneous
  Country: FR (occurrence: FR)
  Receive Date: 20200820
  Receipt Date: 20200820
  Transmission Date: 20201103
  Serious: Yes (Life-Threatening, Other)
  Sender: FDA-Public Use
  Company Number: FR-SA-2020SA219785

PATIENT

DRUGS (8)
  1. ZUCLOPENTHIXOL HYDROCHLORIDE [Suspect]
     Active Substance: ZUCLOPENTHIXOL HYDROCHLORIDE
     Indication: PSYCHOTIC DISORDER
     Dosage: 400 MG
     Route: 030
     Dates: start: 20160523, end: 20160523
  2. GAVISCON [Suspect]
     Active Substance: ALUMINUM HYDROXIDE\MAGNESIUM CARBONATE
  3. ZUCLOPENTHIXOL HYDROCHLORIDE [Suspect]
     Active Substance: ZUCLOPENTHIXOL HYDROCHLORIDE
     Dosage: 800 MG
     Route: 030
     Dates: start: 20160608, end: 20160608
  4. ZUCLOPENTHIXOL HYDROCHLORIDE [Suspect]
     Active Substance: ZUCLOPENTHIXOL HYDROCHLORIDE
     Indication: PSYCHOTIC DISORDER
     Dosage: 75 MG, QD
     Route: 048
  5. CLOZAPINE. [Suspect]
     Active Substance: CLOZAPINE
     Indication: PSYCHOTIC DISORDER
     Dosage: 600 MG, QD
     Route: 048
  6. LAMICTAL [Concomitant]
     Active Substance: LAMOTRIGINE
  7. LACTULOSE. [Suspect]
     Active Substance: LACTULOSE
  8. SERESTA [Concomitant]
     Active Substance: OXAZEPAM

REACTIONS (1)
  - Neuroleptic malignant syndrome [Recovered/Resolved]

NARRATIVE: CASE EVENT DATE: 20160611
